FAERS Safety Report 8463363-6 (Version None)
Quarter: 2012Q2

REPORT INFORMATION
  Report Type: 
  Country: None (occurrence: None)
  Receive Date: 20120625
  Receipt Date: 20120620
  Transmission Date: 20120825
  Serious: Yes (Other)
  Sender: FDA-Public Use
  Company Number: US-MERCK-1206USA03268

PATIENT
  Age: 51 Year
  Sex: Female
  Weight: 63 kg

DRUGS (6)
  1. EFFEXOR XR [Concomitant]
     Indication: ANXIETY
     Route: 065
  2. LIPITOR [Suspect]
     Indication: BLOOD CHOLESTEROL INCREASED
     Route: 065
     Dates: start: 20070101, end: 20070101
  3. RED YEAST [Suspect]
     Indication: BLOOD CHOLESTEROL INCREASED
     Route: 065
  4. PREMPRO [Concomitant]
     Indication: HORMONE REPLACEMENT THERAPY
     Route: 065
  5. ZOCOR [Suspect]
     Indication: BLOOD CHOLESTEROL INCREASED
     Route: 048
  6. STATIN (UNSPECIFIED) [Suspect]
     Route: 065

REACTIONS (8)
  - ADVERSE EVENT [None]
  - MYALGIA [None]
  - MOVEMENT DISORDER [None]
  - PARALYSIS [None]
  - DRUG INEFFECTIVE [None]
  - BLOOD CHOLESTEROL INCREASED [None]
  - MUSCLE SPASMS [None]
  - PAIN IN EXTREMITY [None]
